FAERS Safety Report 16351079 (Version 2)
Quarter: 2021Q1

REPORT INFORMATION
  Report Type: Spontaneous
  Country: VN (occurrence: VN)
  Receive Date: 20190524
  Receipt Date: 20210312
  Transmission Date: 20210419
  Serious: Yes (Other)
  Sender: FDA-Public Use
  Company Number: VN-ROCHE-2322713

PATIENT
  Age: 51 Year
  Sex: Male

DRUGS (3)
  1. OXALIPLATIN. [Suspect]
     Active Substance: OXALIPLATIN
     Indication: COLON CANCER METASTATIC
     Route: 041
     Dates: start: 201606, end: 201612
  2. XELODA [Suspect]
     Active Substance: CAPECITABINE
     Indication: COLON CANCER METASTATIC
     Dosage: TWICE DAILY FOR 2 WEEKS (FROM DAY 1 TO DAY 14), REPEATED EVERY 3 WEEKS
     Route: 048
     Dates: start: 201606, end: 201612
  3. AVASTIN [Suspect]
     Active Substance: BEVACIZUMAB
     Indication: COLON CANCER METASTATIC
     Route: 041
     Dates: start: 201606, end: 201612

REACTIONS (4)
  - Lymphadenitis [Recovered/Resolved]
  - Hepatic fibrosis [Unknown]
  - Therapeutic product effect incomplete [Unknown]
  - Metastases to lung [Unknown]

NARRATIVE: CASE EVENT DATE: 2017
